FAERS Safety Report 16940342 (Version 2)
Quarter: 2019Q4

REPORT INFORMATION
  Report Type: Spontaneous
  Country: JP (occurrence: JP)
  Receive Date: 20191021
  Receipt Date: 20191029
  Transmission Date: 20200122
  Serious: Yes (Other)
  Sender: FDA-Public Use
  Company Number: JP-GLAXOSMITHKLINE-JP2019JPN188841

PATIENT
  Age: 75 Year
  Sex: Male

DRUGS (4)
  1. RELVAR ELLIPTA [Suspect]
     Active Substance: FLUTICASONE FUROATE\VILANTEROL TRIFENATATE
     Indication: ASTHMA
     Dosage: 100 ?G, QD
     Route: 055
     Dates: start: 201904
  2. ISOCORONAL R [Concomitant]
     Active Substance: ISOSORBIDE DINITRATE
     Dosage: UNK
  3. GLACTIV TABLET [Concomitant]
     Dosage: UNK
  4. BAYASPIRIN TABLETS [Concomitant]
     Dosage: UNK

REACTIONS (2)
  - Condition aggravated [Unknown]
  - Arrhythmia [Unknown]
